FAERS Safety Report 4795392-8 (Version None)
Quarter: 2005Q4

REPORT INFORMATION
  Report Type: 
  Country: None (occurrence: None)
  Receive Date: 20051006
  Receipt Date: 20051006
  Transmission Date: 20060501
  Serious: Yes (Hospitalization)
  Sender: FDA-Public Use
  Company Number: None

PATIENT
  Age: 54 Year
  Sex: Female
  Weight: 60 kg

DRUGS (16)
  1. WARFARIN [Suspect]
     Indication: MITRAL VALVE REPLACEMENT
     Dosage: 5 MG DAILY PO
     Route: 048
  2. AMTRIPTYLINE [Concomitant]
  3. ENDOCET [Concomitant]
  4. NEPHROCAPS [Concomitant]
  5. ALBUTEROL [Concomitant]
  6. ASPIRIN [Concomitant]
  7. PERAGEL [Concomitant]
  8. RESTORIL [Concomitant]
  9. ADVAIR DISKUS 100/50 [Concomitant]
  10. VALIUM [Concomitant]
  11. DIOVAN [Concomitant]
  12. PROTONIX [Concomitant]
  13. RHINOCORT [Concomitant]
  14. NORVASC [Concomitant]
  15. LIPITOR [Concomitant]
  16. PERCOCET [Concomitant]

REACTIONS (2)
  - ARTERIOVENOUS GRAFT SITE HAEMORRHAGE [None]
  - INTERNATIONAL NORMALISED RATIO INCREASED [None]
